FAERS Safety Report 10435980 (Version 1)
Quarter: 2014Q3

REPORT INFORMATION
  Report Type: Spontaneous
  Country: US (occurrence: US)
  Receive Date: 20140908
  Receipt Date: 20140908
  Transmission Date: 20150326
  Serious: No
  Sender: FDA-Public Use
  Company Number: US-GLAXOSMITHKLINE-A1080170A

PATIENT
  Age: 77 Year
  Sex: Male

DRUGS (14)
  1. BREO ELLIPTA [Suspect]
     Active Substance: FLUTICASONE FUROATE\VILANTEROL TRIFENATATE
     Indication: CHRONIC OBSTRUCTIVE PULMONARY DISEASE
     Dosage: 1PUFF PER DAY
     Route: 055
     Dates: start: 201406
  2. CRESTOR [Concomitant]
     Active Substance: ROSUVASTATIN CALCIUM
  3. ATENOLOL. [Concomitant]
     Active Substance: ATENOLOL
  4. LORAZEPAM. [Concomitant]
     Active Substance: LORAZEPAM
  5. POLYETHYLENE GLYCOL [Concomitant]
     Active Substance: POLYETHYLENE GLYCOLS
  6. VITAMIN D [Concomitant]
     Active Substance: CHOLECALCIFEROL
  7. FINASTERIDE. [Concomitant]
     Active Substance: FINASTERIDE
  8. ASPIRIN. [Concomitant]
     Active Substance: ASPIRIN
  9. TRAZODONE [Concomitant]
     Active Substance: TRAZODONE HYDROCHLORIDE
  10. NIACIN. [Concomitant]
     Active Substance: NIACIN
  11. HYDROCORTISONE. [Concomitant]
     Active Substance: HYDROCORTISONE
  12. TAMSULOSIN [Concomitant]
     Active Substance: TAMSULOSIN
  13. VITAMIN A [Concomitant]
     Active Substance: VITAMIN A
  14. FLUTICASONE PROPIONATE. [Concomitant]
     Active Substance: FLUTICASONE PROPIONATE

REACTIONS (3)
  - Device misuse [Unknown]
  - Dizziness [Unknown]
  - Abdominal discomfort [Unknown]

NARRATIVE: CASE EVENT DATE: 20140704
